FAERS Safety Report 7771589-X (Version None)
Quarter: 2011Q3

REPORT INFORMATION
  Report Type: 
  Country: None (occurrence: None)
  Receive Date: 20110922
  Receipt Date: 20110715
  Transmission Date: 20111222
  Serious: No
  Sender: FDA-Public Use
  Company Number: US-ASTRAZENECA-2011SE42607

PATIENT
  Age: 69 Year
  Sex: Female
  Weight: 95.3 kg

DRUGS (4)
  1. SEROQUEL XR [Suspect]
     Dosage: 150 MG TO 450 MG AS REQUIRED
     Route: 048
     Dates: start: 20110101
  2. SEROQUEL XR [Suspect]
     Indication: SLEEP DISORDER
     Dosage: 200 MG TO 300 MG AS REQUIRED
     Route: 048
     Dates: start: 20060101, end: 20110101
  3. ATIVAN [Concomitant]
     Indication: SLEEP DISORDER
  4. BENACOL [Concomitant]
     Indication: HYPERTENSION

REACTIONS (3)
  - DRUG INEFFECTIVE FOR UNAPPROVED INDICATION [None]
  - INSOMNIA [None]
  - OFF LABEL USE [None]
